FAERS Safety Report 9106497 (Version 1)
Quarter: 2013Q1

REPORT INFORMATION
  Report Type: Spontaneous
  Country: MX (occurrence: MX)
  Receive Date: 20130221
  Receipt Date: 20130221
  Transmission Date: 20140127
  Serious: Yes (Other)
  Sender: FDA-Public Use
  Company Number: PHHY2013MX016230

PATIENT
  Sex: Female

DRUGS (6)
  1. DIOVAN [Suspect]
     Indication: HYPERTENSION
     Dosage: 160 MG, DAILY
     Route: 048
     Dates: start: 201001
  2. ACLASTA [Suspect]
     Dosage: 1 UKN, ANNUALLY
     Route: 042
     Dates: start: 201212
  3. OROXADIN [Concomitant]
     Dosage: 1 UKN, DAILY
     Dates: start: 201001
  4. LIBERTRIM//TRIMEBUTINE [Concomitant]
     Dosage: 2 UKN, DAILY
     Dates: start: 201001
  5. ASPIRIN PROTECT [Concomitant]
     Dosage: 1 UKN, DAILY
     Dates: start: 200701
  6. ARLUIC [Concomitant]
     Dosage: 3 UNK, DAILY
     Dates: start: 201201

REACTIONS (1)
  - Blood urine present [Not Recovered/Not Resolved]
